FAERS Safety Report 7587349-9 (Version None)
Quarter: 2011Q3

REPORT INFORMATION
  Report Type: 
  Country: None (occurrence: None)
  Receive Date: 20110701
  Receipt Date: 20110622
  Transmission Date: 20111222
  Serious: Yes (Other)
  Sender: FDA-Public Use
  Company Number: GB-ASTRAZENECA-2011SE38274

PATIENT
  Sex: Female

DRUGS (9)
  1. VIMOVO [Suspect]
     Route: 048
     Dates: end: 20110608
  2. SERTRALINE HYDROCHLORIDE [Concomitant]
  3. SIMVASTATIN [Concomitant]
  4. CO-DYDRAMOL [Concomitant]
     Dosage: 10/500 AS REQUIRED
  5. DIAZEPAM [Concomitant]
  6. CO-DYDRAMOL [Concomitant]
     Dosage: 10/500 TWO TABLETS FOUR TIMES A DAY
  7. CARBAMAZEPINE [Concomitant]
  8. LOVAZA [Concomitant]
  9. LOVAZA [Concomitant]

REACTIONS (11)
  - ANAL HAEMORRHAGE [None]
  - DIARRHOEA [None]
  - OEDEMA PERIPHERAL [None]
  - WEIGHT INCREASED [None]
  - ANAL FISSURE [None]
  - WHEEZING [None]
  - DYSPEPSIA [None]
  - ABDOMINAL PAIN UPPER [None]
  - FAECES DISCOLOURED [None]
  - ABNORMAL FAECES [None]
  - EPISTAXIS [None]
